FAERS Safety Report 12774818 (Version 3)
Quarter: 2016Q4

REPORT INFORMATION
  Report Type: Spontaneous
  Country: US (occurrence: US)
  Receive Date: 20160923
  Receipt Date: 20161104
  Transmission Date: 20170207
  Serious: Yes (Other)
  Sender: FDA-Public Use
  Company Number: US-GLAXOSMITHKLINE-US2016136065

PATIENT
  Age: 77 Year
  Sex: Female

DRUGS (9)
  1. SOTALOL. [Concomitant]
     Active Substance: SOTALOL
  2. LOSARTAN. [Concomitant]
     Active Substance: LOSARTAN
  3. VENTOLIN HFA [Suspect]
     Active Substance: ALBUTEROL SULFATE
     Indication: CHRONIC OBSTRUCTIVE PULMONARY DISEASE
     Dosage: 1 PUFF(S), QD
     Route: 055
     Dates: start: 2006
  4. ANORO ELLIPTA [Suspect]
     Active Substance: UMECLIDINIUM BROMIDE\VILANTEROL TRIFENATATE
     Indication: EMPHYSEMA
     Dosage: UNK
  5. SIMVASTATIN. [Concomitant]
     Active Substance: SIMVASTATIN
  6. TYLENOL [Concomitant]
     Active Substance: ACETAMINOPHEN
  7. ANORO ELLIPTA [Suspect]
     Active Substance: UMECLIDINIUM BROMIDE\VILANTEROL TRIFENATATE
     Indication: CHRONIC OBSTRUCTIVE PULMONARY DISEASE
     Dosage: UNK
     Route: 055
     Dates: start: 20160720
  8. LOW DOSE ASPIRIN [Concomitant]
     Active Substance: ASPIRIN
  9. NORCO [Concomitant]
     Active Substance: ACETAMINOPHEN\HYDROCODONE BITARTRATE

REACTIONS (8)
  - Atrial fibrillation [Recovering/Resolving]
  - Heart rate irregular [Recovering/Resolving]
  - Drug ineffective [Unknown]
  - Dizziness [Recovering/Resolving]
  - Tinnitus [Recovering/Resolving]
  - Blood pressure increased [Recovering/Resolving]
  - Nonspecific reaction [Unknown]
  - Drug intolerance [Unknown]

NARRATIVE: CASE EVENT DATE: 201607
